FAERS Safety Report 5126595-0 (Version None)
Quarter: 2006Q4

REPORT INFORMATION
  Report Type: 
  Country: None (occurrence: None)
  Receive Date: 20061013
  Receipt Date: 20060605
  Transmission Date: 20070319
  Serious: Yes (Other)
  Sender: FDA-Public Use
  Company Number: JP-BAYER-200610743BYL

PATIENT
  Age: 23 Year
  Sex: Male
  Weight: 46 kg

DRUGS (7)
  1. CIPROXAN-I.V. [Suspect]
     Indication: ABSCESS INTESTINAL
     Dosage: TOTAL DAILY DOSE: 600 MG  UNIT DOSE: 300 MG
     Route: 042
     Dates: start: 20060524, end: 20060601
  2. CIPROXAN-I.V. [Suspect]
     Dosage: TOTAL DAILY DOSE: 300 MG  UNIT DOSE: 300 MG
     Route: 042
     Dates: start: 20060602, end: 20060603
  3. NORVASC [Concomitant]
     Indication: HYPERTENSION
     Dosage: TOTAL DAILY DOSE: 10 MG
     Route: 048
  4. RENAGEL [Concomitant]
     Dosage: TOTAL DAILY DOSE: 1500 MG  UNIT DOSE: 250 MG
     Route: 048
  5. NU-LOTAN [Concomitant]
     Indication: HYPERTENSION
     Dosage: TOTAL DAILY DOSE: 25 MG
     Route: 048
  6. INTRALIPID 10% [Concomitant]
     Route: 041
     Dates: start: 20060525, end: 20060601
  7. MEROPENEM TRIHYDRATE [Concomitant]
     Route: 042
     Dates: end: 20060523

REACTIONS (1)
  - HYPOGLYCAEMIA [None]
